FAERS Safety Report 25605274 (Version 1)
Quarter: 2025Q3

REPORT INFORMATION
  Report Type: Spontaneous
  Country: JP (occurrence: JP)
  Receive Date: 20250725
  Receipt Date: 20250725
  Transmission Date: 20251020
  Serious: Yes (Other)
  Sender: JOHNSON AND JOHNSON
  Company Number: JP-JNJFOC-20250729142

PATIENT
  Age: 8 Decade
  Sex: Female

DRUGS (2)
  1. UPTRAVI [Suspect]
     Active Substance: SELEXIPAG
     Indication: Pulmonary hypertension
     Route: 048
     Dates: start: 20250210
  2. ADEMPAS [Concomitant]
     Active Substance: RIOCIGUAT
     Indication: Pulmonary hypertension
     Route: 048

REACTIONS (1)
  - Hand fracture [Recovered/Resolved]
